FAERS Safety Report 9175136 (Version 2)
Quarter: 2013Q2

REPORT INFORMATION
  Report Type: Spontaneous
  Country: US (occurrence: None)
  Receive Date: 20130315
  Receipt Date: 20130408
  Transmission Date: 20140414
  Serious: Yes (Other)
  Sender: FDA-Public Use
  Company Number: 1303-315

PATIENT
  Age: 85 Year
  Sex: Female
  Weight: 50.8 kg

DRUGS (3)
  1. EYLEA (AFLIBERCEPT) (INJECTION) (AFLIBERCEPT) [Suspect]
     Indication: AGE-RELATED MACULAR DEGENERATION
     Dosage: INTRAVITREAL
     Dates: start: 20130204
  2. SYNTHROID (LEVOTHYROXINE SODIUM) [Concomitant]
  3. NORVASC (AMLODIPINNE BESILATE) [Concomitant]

REACTIONS (2)
  - Blindness transient [None]
  - Vision blurred [None]
